FAERS Safety Report 7152278-1 (Version None)
Quarter: 2010Q4

REPORT INFORMATION
  Report Type: 
  Country: None (occurrence: None)
  Receive Date: 20101213
  Receipt Date: 20090713
  Transmission Date: 20110411
  Serious: No
  Sender: FDA-Public Use
  Company Number: 2009BI022060

PATIENT
  Age: 51 Year
  Sex: Female

DRUGS (1)
  1. TYSABRI [Suspect]
     Indication: MULTIPLE SCLEROSIS
     Route: 042
     Dates: start: 20081031

REACTIONS (10)
  - BALANCE DISORDER [None]
  - BAND SENSATION [None]
  - COGNITIVE DISORDER [None]
  - HEADACHE [None]
  - HEMIPARESIS [None]
  - MICTURITION URGENCY [None]
  - MUSCULAR WEAKNESS [None]
  - PAIN IN EXTREMITY [None]
  - PARAESTHESIA [None]
  - URINARY TRACT INFECTION [None]
